FAERS Safety Report 26077312 (Version 1)
Quarter: 2025Q4

REPORT INFORMATION
  Report Type: Spontaneous
  Country: US (occurrence: US)
  Receive Date: 20251121
  Receipt Date: 20251121
  Transmission Date: 20260117
  Serious: Yes (Other)
  Sender: MERCK SHARP & DOHME LLC
  Company Number: US-009507513-2351566

PATIENT
  Age: 12 Year
  Sex: Male

DRUGS (1)
  1. WELIREG [Suspect]
     Active Substance: BELZUTIFAN
     Indication: Paraganglion neoplasm
     Dosage: FORMULATION: PILL; DOSE: 3 PILLS DAILY
     Route: 048

REACTIONS (2)
  - Malignant neoplasm progression [Unknown]
  - Product use complaint [Unknown]
